FAERS Safety Report 6945780-6 (Version None)
Quarter: 2010Q3

REPORT INFORMATION
  Report Type: 
  Country: None (occurrence: None)
  Receive Date: 20100827
  Receipt Date: 20100818
  Transmission Date: 20110219
  Serious: Yes (Hospitalization)
  Sender: FDA-Public Use
  Company Number: B0670384A

PATIENT
  Sex: Male

DRUGS (8)
  1. PAROXETINE HCL [Suspect]
     Dosage: 20MG PER DAY
     Route: 048
     Dates: start: 20100119, end: 20100120
  2. TERCIAN [Suspect]
     Dosage: 100MG PER DAY
     Route: 048
     Dates: start: 20100119, end: 20100120
  3. EQUANIL [Suspect]
     Dosage: 250MG PER DAY
     Route: 048
     Dates: start: 20100119, end: 20100120
  4. KARDEGIC [Concomitant]
     Dosage: 1UNIT PER DAY
     Route: 048
  5. FER [Concomitant]
     Indication: IRON DEFICIENCY
     Dosage: 1UNIT PER DAY
     Route: 048
  6. OMEPRAZOLE [Concomitant]
     Dosage: 10MG PER DAY
     Route: 048
  7. NULYTELY [Concomitant]
     Indication: CONSTIPATION
     Dosage: 1UNIT PER DAY
     Route: 048
  8. IKOREL [Concomitant]
     Dosage: 10MG TWICE PER DAY
     Route: 065

REACTIONS (2)
  - HYPOREFLEXIA [None]
  - SOMNOLENCE [None]
